FAERS Safety Report 12828427 (Version 1)
Quarter: 2016Q4

REPORT INFORMATION
  Report Type: Spontaneous
  Country: US (occurrence: US)
  Receive Date: 20161007
  Receipt Date: 20161007
  Transmission Date: 20170207
  Serious: No
  Sender: FDA-Public Use
  Company Number: US-TEVA-698408USA

PATIENT
  Sex: Female

DRUGS (1)
  1. AZILECT [Suspect]
     Active Substance: RASAGILINE MESYLATE
     Indication: PARKINSON^S DISEASE
     Route: 065

REACTIONS (12)
  - Feeling abnormal [Unknown]
  - Temperature intolerance [Unknown]
  - Palpitations [Unknown]
  - Head discomfort [Unknown]
  - Eye disorder [Unknown]
  - Extrasystoles [Unknown]
  - Musculoskeletal disorder [Recovered/Resolved]
  - Tremor [Unknown]
  - Anxiety [Unknown]
  - Feeling abnormal [Unknown]
  - Headache [Unknown]
  - Malaise [Unknown]

NARRATIVE: CASE EVENT DATE: 20160804
